FAERS Safety Report 7088642-9 (Version None)
Quarter: 2010Q4

REPORT INFORMATION
  Report Type: 
  Country: None (occurrence: None)
  Receive Date: 20101028
  Receipt Date: 20101014
  Transmission Date: 20110411
  Serious: Yes (Other)
  Sender: FDA-Public Use
  Company Number: 8051004

PATIENT
  Sex: Female
  Weight: 131 kg

DRUGS (2)
  1. CIMZIA [Suspect]
     Indication: CROHN'S DISEASE
     Dosage: (SUBCUTANEOUS)
     Route: 058
     Dates: end: 20090101
  2. PREDNISONE [Concomitant]

REACTIONS (7)
  - ABDOMINAL PAIN [None]
  - CAESAREAN SECTION [None]
  - DRUG EXPOSURE DURING PREGNANCY [None]
  - PLACENTA ACCRETA [None]
  - POSTPARTUM HAEMORRHAGE [None]
  - PREGNANCY [None]
  - TACHYCARDIA FOETAL [None]
